FAERS Safety Report 15767433 (Version 3)
Quarter: 2019Q1

REPORT INFORMATION
  Report Type: Spontaneous
  Country: KR (occurrence: KR)
  Receive Date: 20181227
  Receipt Date: 20190128
  Transmission Date: 20190417
  Serious: Yes (Hospitalization)
  Sender: FDA-Public Use
  Company Number: KR-SAKK-2018SA388378AA

PATIENT
  Age: 64 Year
  Sex: Male

DRUGS (3)
  1. TRIPTORELIN ACETATE [Suspect]
     Active Substance: TRIPTORELIN ACETATE
     Indication: PROSTATE CANCER
     Dosage: 11.25 MG, Q3M
     Route: 058
     Dates: start: 20181121, end: 20181121
  2. TAXOTERE [Suspect]
     Active Substance: DOCETAXEL
     Dosage: BSA: 1.88/40 MG/M2 (BIWEEKLY), QOW
     Route: 042
     Dates: start: 20181219, end: 20181219
  3. TAXOTERE [Suspect]
     Active Substance: DOCETAXEL
     Indication: PROSTATE CANCER
     Dosage: BSA: 1.88/40 MG/M2 (BIWEEKLY)
     Route: 042
     Dates: start: 20181207, end: 20181207

REACTIONS (3)
  - Diarrhoea [Recovered/Resolved]
  - Oropharyngeal pain [Recovered/Resolved]
  - Hypophagia [Recovered/Resolved]

NARRATIVE: CASE EVENT DATE: 20181207
